FAERS Safety Report 12880297 (Version 1)
Quarter: 2016Q4

REPORT INFORMATION
  Report Type: Spontaneous
  Country: US (occurrence: US)
  Receive Date: 20161024
  Receipt Date: 20161024
  Transmission Date: 20170207
  Serious: Yes (Other)
  Sender: FDA-Public Use
  Company Number: None

PATIENT
  Age: 84 Year
  Sex: Female

DRUGS (3)
  1. VOLTAREN [Suspect]
     Active Substance: DICLOFENAC SODIUM
     Indication: SKIN EXFOLIATION
     Route: 061
     Dates: start: 20160929, end: 20161023
  2. TRIAMCINOLONE [Concomitant]
     Active Substance: TRIAMCINOLONE
  3. BETAMETHASONE DP [Concomitant]

REACTIONS (1)
  - Application site inflammation [None]

NARRATIVE: CASE EVENT DATE: 20161023
